FAERS Safety Report 5022013-1 (Version None)
Quarter: 2006Q2

REPORT INFORMATION
  Report Type: 
  Country: None (occurrence: None)
  Receive Date: 20060609
  Receipt Date: 20060519
  Transmission Date: 20061013
  Serious: Yes (Hospitalization)
  Sender: FDA-Public Use
  Company Number: ES-SP-2006-01341

PATIENT
  Age: 67 Year
  Sex: Male
  Weight: 85.4 kg

DRUGS (2)
  1. IMMUCYST [Suspect]
     Indication: BLADDER CANCER
     Dosage: 81 MG / WEEK
     Route: 043
     Dates: start: 20050809, end: 20060207
  2. LOSARTAN POTASSIUM [Concomitant]

REACTIONS (3)
  - DUODENAL ULCER [None]
  - GASTROINTESTINAL HAEMORRHAGE [None]
  - GRANULOMATOUS LIVER DISEASE [None]
